FAERS Safety Report 9389008 (Version 1)
Quarter: 2013Q3

REPORT INFORMATION
  Report Type: Spontaneous
  Country: ES (occurrence: ES)
  Receive Date: 20130708
  Receipt Date: 20130708
  Transmission Date: 20140515
  Serious: Yes (Hospitalization)
  Sender: FDA-Public Use
  Company Number: ES-PFIZER INC-2013197482

PATIENT
  Age: 38 Year
  Sex: Female

DRUGS (5)
  1. TRANKIMAZIN [Suspect]
     Dosage: 190 MG, SINGLE
     Route: 048
     Dates: start: 20121120, end: 20121120
  2. DIAZEPAM [Interacting]
     Dosage: 1.5 G, SINGLE
     Route: 048
     Dates: start: 20121120, end: 20121120
  3. DEPRAX (TRAZODONE HYDROCHLORIDE) [Interacting]
     Dosage: 5 G, SINGLE
     Route: 048
     Dates: start: 20121120, end: 20121120
  4. CYMBALTA [Concomitant]
     Indication: DEPRESSION
     Dosage: 60 MG/DAY
     Route: 048
     Dates: start: 2008, end: 20121119
  5. VALDOXAN [Concomitant]
     Indication: DEPRESSION
     Dosage: 25MG/DAY
     Route: 048
     Dates: start: 2008, end: 20121119

REACTIONS (5)
  - Intentional overdose [Recovered/Resolved]
  - Drug interaction [Recovered/Resolved]
  - Long QT syndrome [Recovered/Resolved]
  - Hypotension [Recovered/Resolved]
  - Consciousness fluctuating [Recovered/Resolved]
